FAERS Safety Report 5806254-9 (Version None)
Quarter: 2008Q3

REPORT INFORMATION
  Report Type: 
  Country: None (occurrence: None)
  Receive Date: 20080709
  Receipt Date: 20080709
  Transmission Date: 20090109
  Serious: Yes (Disabling)
  Sender: FDA-Public Use
  Company Number: None

PATIENT
  Sex: Female

DRUGS (4)
  1. MARCAINE HYDROCHLORIDE W/ EPINEPHRINE [Suspect]
     Indication: ARTHROPATHY
     Dosage: 300 CC 1:200,000   014
     Dates: start: 20020624
  2. MARCAINE HYDROCHLORIDE W/ EPINEPHRINE [Suspect]
     Indication: ILL-DEFINED DISORDER
     Dosage: 300 CC 1:200,000   014
     Dates: start: 20020624
  3. MARCAINE HYDROCHLORIDE W/ EPINEPHRINE [Suspect]
     Indication: ARTHROPATHY
     Dosage: 300 CC 1:200,000   014
     Dates: start: 20040607
  4. MARCAINE HYDROCHLORIDE W/ EPINEPHRINE [Suspect]
     Indication: ILL-DEFINED DISORDER
     Dosage: 300 CC 1:200,000   014
     Dates: start: 20040607

REACTIONS (3)
  - CHONDROPATHY [None]
  - ILL-DEFINED DISORDER [None]
  - MUSCLE ATROPHY [None]
